FAERS Safety Report 6371786-4 (Version None)
Quarter: 2009Q3

REPORT INFORMATION
  Report Type: 
  Country: None (occurrence: None)
  Receive Date: 20090923
  Receipt Date: 20090921
  Transmission Date: 20100115
  Serious: Yes (Life-Threatening, Hospitalization, Disabling)
  Sender: FDA-Public Use
  Company Number: US-B.I. PHARMACEUTICALS,INC./RIDGEFIELD-2009-BP-08381BP

PATIENT
  Age: 61 Year
  Sex: Female

DRUGS (10)
  1. SPIRIVA [Suspect]
  2. CELEBREX [Suspect]
     Dates: start: 20010101
  3. LYRICA [Suspect]
     Dates: end: 20090101
  4. CHANTIX [Suspect]
     Indication: EX-TOBACCO USER
     Dates: start: 20080101
  5. VIOXX [Concomitant]
  6. LISINOPRIL [Concomitant]
  7. TAMOXIFEN CITRATE [Concomitant]
  8. UNSPECIFIED HIGH BLOOD PRESSURE MEDICINE [Concomitant]
     Indication: HYPERTENSION
  9. CHOLESTEROL MEDICINE [Concomitant]
     Indication: BLOOD CHOLESTEROL INCREASED
  10. 2 UNSPECIFIED INHALERS [Concomitant]

REACTIONS (38)
  - ABDOMINAL DISCOMFORT [None]
  - ANXIETY [None]
  - ASTHMA [None]
  - BLOOD CHOLESTEROL INCREASED [None]
  - BREAST OPERATION [None]
  - CHRONIC OBSTRUCTIVE PULMONARY DISEASE [None]
  - DEPRESSION [None]
  - DIZZINESS [None]
  - DYSPNOEA [None]
  - EATING DISORDER [None]
  - FEELING ABNORMAL [None]
  - FIBROMYALGIA [None]
  - HEADACHE [None]
  - HIATUS HERNIA [None]
  - HYPERTENSION [None]
  - INTERVERTEBRAL DISC DISORDER [None]
  - MALAISE [None]
  - MASS [None]
  - MIGRAINE [None]
  - MOVEMENT DISORDER [None]
  - MUSCULOSKELETAL DISCOMFORT [None]
  - MYOCARDIAL INFARCTION [None]
  - NAUSEA [None]
  - NERVOUSNESS [None]
  - NICOTINE DEPENDENCE [None]
  - NIGHTMARE [None]
  - OEDEMA PERIPHERAL [None]
  - PAIN [None]
  - PERFORATED ULCER [None]
  - ROAD TRAFFIC ACCIDENT [None]
  - SLEEP DISORDER [None]
  - STRESS [None]
  - SURGERY [None]
  - TEARFULNESS [None]
  - THORACIC OUTLET SYNDROME [None]
  - TOBACCO WITHDRAWAL SYMPTOMS [None]
  - TREMOR [None]
  - VOMITING [None]
